FAERS Safety Report 11720683 (Version 7)
Quarter: 2018Q1

REPORT INFORMATION
  Report Type: Report from Study
  Country: US (occurrence: US)
  Receive Date: 20151110
  Receipt Date: 20180130
  Transmission Date: 20180508
  Serious: Yes (Death, Hospitalization, Other)
  Sender: FDA-Public Use
  Company Number: US-B.I. PHARMACEUTICALS,INC./RIDGEFIELD-2015-BI-46959BP

PATIENT
  Age: 80 Year
  Sex: Male

DRUGS (2)
  1. OFEV [Suspect]
     Active Substance: NINTEDANIB
     Indication: IDIOPATHIC PULMONARY FIBROSIS
     Route: 048
     Dates: start: 20150807
  2. OFEV [Suspect]
     Active Substance: NINTEDANIB
     Route: 048
     Dates: start: 20161028

REACTIONS (11)
  - Productive cough [Unknown]
  - Dyspnoea exertional [Unknown]
  - Death [Fatal]
  - Cough [Unknown]
  - Dyspnoea [Unknown]
  - Viral infection [Unknown]
  - Diarrhoea [Unknown]
  - Retinal artery embolism [Unknown]
  - Pyrexia [Unknown]
  - Cellulitis [Unknown]
  - Heart rate increased [Unknown]

NARRATIVE: CASE EVENT DATE: 20180121
